FAERS Safety Report 21268994 (Version 1)
Quarter: 2022Q3

REPORT INFORMATION
  Report Type: Spontaneous
  Country: CN (occurrence: CN)
  Receive Date: 20220830
  Receipt Date: 20220830
  Transmission Date: 20221027
  Serious: Yes (Hospitalization, Other)
  Sender: FDA-Public Use
  Company Number: None

PATIENT
  Age: 43 Year
  Sex: Female
  Weight: 47 kg

DRUGS (5)
  1. CYCLOPHOSPHAMIDE [Suspect]
     Active Substance: CYCLOPHOSPHAMIDE
     Indication: Breast cancer female
     Dosage: 900 MG, Q14D (DILUTED WITH 0.9% SODIUM CHLORIDE INJECTION 100 ML, ST, D1)
     Route: 041
     Dates: start: 20220810, end: 20220810
  2. SODIUM CHLORIDE [Suspect]
     Active Substance: SODIUM CHLORIDE
     Indication: Medication dilution
     Dosage: 100 ML, Q14D (DILUTED WITH CYCLOPHOSPHAMIDE FOR INJECTION 900 MG, ST, D1)
     Route: 041
     Dates: start: 20220810, end: 20220810
  3. DEXTROSE MONOHYDRATE [Suspect]
     Active Substance: DEXTROSE MONOHYDRATE
     Indication: Medication dilution
     Dosage: 100 ML, Q14D (DILUTED WITH PIRARUBICIN HYDROCHLORIDE FOR INJECTION 90 MG, ST, D1)
     Route: 041
     Dates: start: 20220810, end: 20220810
  4. PIRARUBICIN HYDROCHLORIDE [Suspect]
     Active Substance: PIRARUBICIN HYDROCHLORIDE
     Indication: Breast cancer female
     Dosage: 90 MG, Q14D (DILUTED WITH 5% GLUCOSE INJECTION 100ML, ST, D1)
     Route: 041
     Dates: start: 20220810, end: 20220810
  5. PEGYLATED RECOMBINANT HUMAN GRANULOCYTE COLONY-STIMULATING FACTOR [Concomitant]
     Indication: Prophylaxis
     Dosage: 6 MG, ST
     Route: 058
     Dates: start: 20220811

REACTIONS (3)
  - Myelosuppression [Recovered/Resolved]
  - White blood cell count decreased [Recovered/Resolved]
  - Granulocyte count decreased [Recovered/Resolved]

NARRATIVE: CASE EVENT DATE: 20220816
